FAERS Safety Report 6793713-8 (Version None)
Quarter: 2010Q2

REPORT INFORMATION
  Report Type: 
  Country: None (occurrence: None)
  Receive Date: 20100624
  Receipt Date: 20090223
  Transmission Date: 20101027
  Serious: No
  Sender: FDA-Public Use
  Company Number: US-PFIZER INC-2009152472

PATIENT
  Sex: Female
  Weight: 45.351 kg

DRUGS (1)
  1. XALATAN [Suspect]
     Indication: BORDERLINE GLAUCOMA
     Dosage: 2 GTT, 1X/DAY
     Route: 031

REACTIONS (1)
  - COELIAC DISEASE [None]
